FAERS Safety Report 23284655 (Version 5)
Quarter: 2024Q2

REPORT INFORMATION
  Report Type: Spontaneous
  Country: US (occurrence: US)
  Receive Date: 20231211
  Receipt Date: 20240524
  Transmission Date: 20240716
  Serious: Yes (Other)
  Sender: FDA-Public Use
  Company Number: US-Calliditas-2023CAL01567

PATIENT
  Age: 31 Year
  Sex: Female

DRUGS (7)
  1. TARPEYO [Suspect]
     Active Substance: BUDESONIDE
     Indication: IgA nephropathy
     Dosage: 16 MG (4 MG CAPSULES) ONCE DAILY
     Route: 048
     Dates: start: 20231107
  2. LOSARTAN [Concomitant]
     Active Substance: LOSARTAN
  3. RYBELSUS [Suspect]
     Active Substance: SEMAGLUTIDE
     Indication: Proteinuria
     Dates: start: 202311
  4. PANTOPRAZOLE [Concomitant]
     Active Substance: PANTOPRAZOLE
  5. DESOGESTREL\ETHINYL ESTRADIOL [Suspect]
     Active Substance: DESOGESTREL\ETHINYL ESTRADIOL
     Indication: Ovarian cyst
  6. FARXIGA [Suspect]
     Active Substance: DAPAGLIFLOZIN PROPANEDIOL
     Indication: Ovarian cyst
  7. ICOSAPENT ETHYL [Concomitant]
     Active Substance: ICOSAPENT ETHYL

REACTIONS (16)
  - Nausea [Not Recovered/Not Resolved]
  - Vomiting [Not Recovered/Not Resolved]
  - Abdominal distension [Recovering/Resolving]
  - Increased appetite [Not Recovered/Not Resolved]
  - Constipation [Recovered/Resolved]
  - Prescribed underdose [Not Recovered/Not Resolved]
  - Gastrooesophageal reflux disease [Not Recovered/Not Resolved]
  - Haematemesis [Recovered/Resolved]
  - Decreased appetite [Recovered/Resolved]
  - Weight decreased [Recovered/Resolved]
  - Urinary tract infection [Recovered/Resolved]
  - Ovarian cyst [Not Recovered/Not Resolved]
  - Blood creatinine increased [Recovered/Resolved]
  - Galactorrhoea [Recovered/Resolved]
  - Papilloma viral infection [Not Recovered/Not Resolved]
  - Cervical dysplasia [Not Recovered/Not Resolved]

NARRATIVE: CASE EVENT DATE: 20231001
